FAERS Safety Report 6720760-4 (Version None)
Quarter: 2010Q2

REPORT INFORMATION
  Report Type: 
  Country: None (occurrence: None)
  Receive Date: 20100512
  Receipt Date: 20100505
  Transmission Date: 20101027
  Serious: Yes (Other)
  Sender: FDA-Public Use
  Company Number: US-BIOGENIDEC-2010BI014805

PATIENT
  Sex: Female
  Weight: 72 kg

DRUGS (3)
  1. AVONEX [Suspect]
     Indication: MULTIPLE SCLEROSIS
     Route: 030
     Dates: start: 20031001, end: 20080601
  2. NEURONTIN [Concomitant]
     Indication: MULTIPLE SCLEROSIS
  3. LEXAPRO [Concomitant]
     Indication: DEPRESSION

REACTIONS (4)
  - CATARACT [None]
  - CONVULSION [None]
  - DISTURBANCE IN ATTENTION [None]
  - MEMORY IMPAIRMENT [None]
